FAERS Safety Report 4791760-9 (Version None)
Quarter: 2005Q3

REPORT INFORMATION
  Report Type: 
  Country: None (occurrence: None)
  Receive Date: 20050930
  Receipt Date: 20050919
  Transmission Date: 20060218
  Serious: Yes (Other)
  Sender: FDA-Public Use
  Company Number: 2004-118237-NL

PATIENT
  Age: 55 Year
  Sex: Male

DRUGS (2)
  1. TICE BCG [Suspect]
     Indication: BLADDER CANCER
     Dosage: CFU INTRAVESICAL
     Route: 043
     Dates: start: 20040430, end: 20040604
  2. INTRON A [Suspect]
     Indication: BLADDER CANCER
     Dosage: 50 MIU WEEKLY INTRAVESICAL
     Route: 043
     Dates: start: 20040430, end: 20040604

REACTIONS (13)
  - ARTHRALGIA [None]
  - ARTHRITIS [None]
  - CONJUNCTIVITIS [None]
  - EYE PRURITUS [None]
  - EYE SWELLING [None]
  - JOINT SWELLING [None]
  - MULTIPLE ALLERGIES [None]
  - NIGHT SWEATS [None]
  - OCULAR HYPERAEMIA [None]
  - POLLAKIURIA [None]
  - PYREXIA [None]
  - REITER'S SYNDROME [None]
  - WHITE BLOOD CELLS URINE POSITIVE [None]
